FAERS Safety Report 9602418 (Version 1)
Quarter: 2013Q4

REPORT INFORMATION
  Report Type: Spontaneous
  Country: CN (occurrence: CN)
  Receive Date: 20131007
  Receipt Date: 20131007
  Transmission Date: 20140711
  Serious: Yes (Death)
  Sender: FDA-Public Use
  Company Number: PHHY2013CN110969

PATIENT
  Age: 45 Year
  Sex: Male

DRUGS (3)
  1. CICLOSPORIN [Suspect]
     Indication: HISTIOCYTOSIS HAEMATOPHAGIC
     Dosage: 75 MG, BID
  2. IMMUNOGLOBULIN I.V [Suspect]
     Dosage: 25 G, BID
  3. PREDNISOLONE [Concomitant]

REACTIONS (3)
  - Multi-organ failure [Fatal]
  - Haemorrhage intracranial [Fatal]
  - Drug ineffective [Unknown]
